FAERS Safety Report 7484028-3 (Version None)
Quarter: 2011Q2

REPORT INFORMATION
  Report Type: 
  Country: None (occurrence: None)
  Receive Date: 20110517
  Receipt Date: 20110418
  Transmission Date: 20111010
  Serious: Yes (Hospitalization, Other)
  Sender: FDA-Public Use
  Company Number: US-BAYER-201030412NA

PATIENT
  Age: 24 Year
  Sex: Female
  Weight: 77 kg

DRUGS (5)
  1. XANAX [Concomitant]
     Dosage: UNK UNK, PRN
     Route: 048
  2. YAZ [Suspect]
     Indication: PRODUCT USED FOR UNKNOWN INDICATION
     Route: 048
     Dates: start: 20060101
  3. YASMIN [Suspect]
     Indication: PRODUCT USED FOR UNKNOWN INDICATION
     Route: 048
     Dates: start: 20060101
  4. ACIPHEX [Concomitant]
     Route: 048
  5. VICODIN [Concomitant]
     Dosage: UNK UNK, PRN
     Route: 048

REACTIONS (7)
  - VOMITING [None]
  - CHOLECYSTITIS CHRONIC [None]
  - GALLBLADDER INJURY [None]
  - ABDOMINAL TENDERNESS [None]
  - GASTRITIS [None]
  - CHOLECYSTITIS ACUTE [None]
  - ABDOMINAL PAIN [None]
